FAERS Safety Report 9287917 (Version 1)
Quarter: 2013Q2

REPORT INFORMATION
  Report Type: Spontaneous
  Country: CA (occurrence: CA)
  Receive Date: 20130514
  Receipt Date: 20130514
  Transmission Date: 20140414
  Serious: Yes (Death)
  Sender: FDA-Public Use
  Company Number: CA-TEVA-404837USA

PATIENT
  Age: 50 Year
  Sex: Male
  Weight: 73 kg

DRUGS (6)
  1. BUPROPION [Suspect]
     Dosage: EXTENDED-RELEASE
     Route: 065
  2. VENLAFAXINE XR [Suspect]
     Dosage: EXTENDED-RELEASE
     Route: 065
  3. LENOLTEC WITH CODEINE [Concomitant]
  4. LORAZEPAM [Concomitant]
  5. RISPERIDONE [Concomitant]
  6. TEMAZEPAM [Concomitant]

REACTIONS (1)
  - Circulatory collapse [Fatal]
